FAERS Safety Report 7494413-1 (Version None)
Quarter: 2011Q2

REPORT INFORMATION
  Report Type: 
  Country: None (occurrence: None)
  Receive Date: 20110520
  Receipt Date: 20110516
  Transmission Date: 20111010
  Serious: Yes (Other)
  Sender: FDA-Public Use
  Company Number: US-ROXANE LABORATORIES, INC.-2011-RO-00674RO

PATIENT
  Age: 66 Year
  Sex: Female
  Weight: 57 kg

DRUGS (5)
  1. EXEMESTANE [Suspect]
     Indication: BREAST CANCER METASTATIC
     Dates: start: 20110424
  2. SYNTHROID [Concomitant]
     Indication: THYROID DISORDER
  3. AROMASIN [Suspect]
     Indication: BREAST CANCER METASTATIC
     Dosage: 25 MG
     Route: 048
     Dates: start: 20100101, end: 20110423
  4. SOMA [Concomitant]
     Indication: POLYMYALGIA RHEUMATICA
  5. ASPIRIN [Concomitant]

REACTIONS (6)
  - PAIN [None]
  - MYALGIA [None]
  - FATIGUE [None]
  - ABDOMINAL DISCOMFORT [None]
  - MALAISE [None]
  - ARTHRALGIA [None]
